FAERS Safety Report 23989012 (Version 1)
Quarter: 2024Q2

REPORT INFORMATION
  Report Type: Spontaneous
  Country: CN (occurrence: CN)
  Receive Date: 20240619
  Receipt Date: 20240619
  Transmission Date: 20240716
  Serious: Yes (Other)
  Sender: FDA-Public Use
  Company Number: CN-GLAXOSMITHKLINE-CN2024APC073445

PATIENT

DRUGS (9)
  1. BENLYSTA [Suspect]
     Active Substance: BELIMUMAB
     Indication: Systemic lupus erythematosus
     Dosage: 600 MG, QD
     Route: 041
     Dates: start: 20231228, end: 20231228
  2. BENLYSTA [Suspect]
     Active Substance: BELIMUMAB
     Dosage: 600 MG
     Route: 041
     Dates: start: 20240111, end: 20240111
  3. BENLYSTA [Suspect]
     Active Substance: BELIMUMAB
     Dosage: 600 MG
     Route: 041
     Dates: start: 20240125, end: 20240125
  4. TACROLIMUS [Suspect]
     Active Substance: TACROLIMUS
     Indication: Systemic lupus erythematosus
     Dosage: 1 MG, TID
     Route: 041
     Dates: start: 20231214, end: 20231228
  5. TACROLIMUS [Suspect]
     Active Substance: TACROLIMUS
     Dosage: 1 MG, TID
     Route: 041
     Dates: start: 20231228, end: 20240104
  6. TACROLIMUS [Suspect]
     Active Substance: TACROLIMUS
     Dosage: 1 MG, TID
     Route: 041
     Dates: start: 20240104, end: 20240125
  7. SODIUM CHLORIDE [Concomitant]
     Active Substance: SODIUM CHLORIDE
     Indication: Vehicle solution use
     Dosage: 250. ML, QD
     Route: 041
     Dates: start: 20231228, end: 20231228
  8. SODIUM CHLORIDE [Concomitant]
     Active Substance: SODIUM CHLORIDE
     Dosage: 250. ML, QD
     Route: 041
     Dates: start: 20240111, end: 20240111
  9. SODIUM CHLORIDE [Concomitant]
     Active Substance: SODIUM CHLORIDE
     Dosage: 250. ML, QD
     Route: 041
     Dates: start: 20240125, end: 20240125

REACTIONS (3)
  - Fall [Recovering/Resolving]
  - Thrombocytopenia [Recovering/Resolving]
  - Fatigue [Recovering/Resolving]

NARRATIVE: CASE EVENT DATE: 20240111
